FAERS Safety Report 21635036 (Version 1)
Quarter: 2022Q4

REPORT INFORMATION
  Report Type: Spontaneous
  Country: US (occurrence: None)
  Receive Date: 20221122
  Receipt Date: 20221122
  Transmission Date: 20230112
  Serious: Yes (Hospitalization)
  Sender: FDA-Public Use
  Company Number: None

PATIENT
  Sex: Female

DRUGS (2)
  1. ICATIBANT ACETATE [Suspect]
     Active Substance: ICATIBANT ACETATE
     Indication: Complement factor abnormal
     Dosage: FREQUENCY : AS NEEDED;?
     Route: 058
     Dates: start: 202208
  2. TAKHZYRO [Suspect]
     Active Substance: LANADELUMAB-FLYO

REACTIONS (3)
  - Dehydration [None]
  - Urinary tract infection [None]
  - Alopecia [None]
